FAERS Safety Report 7029646-1 (Version None)
Quarter: 2010Q4

REPORT INFORMATION
  Report Type: 
  Country: None (occurrence: None)
  Receive Date: 20101005
  Receipt Date: 20100927
  Transmission Date: 20110411
  Serious: Yes (Hospitalization)
  Sender: FDA-Public Use
  Company Number: FR-MERCK-1008FRA00054

PATIENT
  Age: 38 Year
  Sex: Female

DRUGS (7)
  1. ISENTRESS [Suspect]
     Indication: HIV INFECTION
     Route: 048
     Dates: end: 20100702
  2. ETRAVIRINE [Suspect]
     Indication: HIV INFECTION
     Route: 048
     Dates: end: 20100702
  3. HYDROCHLOROTHIAZIDE AND IRBESARTAN [Suspect]
     Route: 048
     Dates: end: 20100702
  4. ABACAVIR SULFATE AND LAMIVUDINE [Suspect]
     Indication: HIV INFECTION
     Route: 048
     Dates: start: 20100703
  5. DARUNAVIR [Suspect]
     Indication: HIV INFECTION
     Route: 048
     Dates: start: 20100703
  6. RITONAVIR [Suspect]
     Indication: HIV INFECTION
     Route: 048
     Dates: start: 20100703
  7. METHYLDOPA [Suspect]
     Route: 048
     Dates: start: 20100703

REACTIONS (3)
  - ABORTION SPONTANEOUS [None]
  - UTERINE HAEMATOMA [None]
  - VAGINAL HAEMORRHAGE [None]
